FAERS Safety Report 5213006-X (Version None)
Quarter: 2007Q1

REPORT INFORMATION
  Report Type: 
  Country: None (occurrence: None)
  Receive Date: 20070117
  Receipt Date: 20070108
  Transmission Date: 20070707
  Serious: Yes (Hospitalization)
  Sender: FDA-Public Use
  Company Number: TPA2007A00037

PATIENT
  Age: 63 Year
  Sex: Female
  Weight: 90.7194 kg

DRUGS (24)
  1. ACTOS [Suspect]
     Indication: DIABETES MELLITUS NON-INSULIN-DEPENDENT
     Dosage: 15 MG, 1 IN 1 D, PER ORAL
     Route: 048
     Dates: start: 20060101, end: 20060901
  2. AZATHIOPRINE [Concomitant]
  3. SALIVANT (ALL OTHER THERAPEUTIC PRODUCTS) [Concomitant]
  4. CLONAZEPAM [Concomitant]
  5. PREDNISONE TAB [Concomitant]
  6. PULMICORT [Concomitant]
  7. PLAVIX [Concomitant]
  8. ACIPHEX [Concomitant]
  9. TOPROL XL (METROPROLOL SUCCINATE) [Concomitant]
  10. ZYRTEC [Concomitant]
  11. ALBUTEROL [Concomitant]
  12. RHINOCORT [Concomitant]
  13. ARTIFICIAL TEARS (ARTIFICIAL TEARS) [Concomitant]
  14. CENTRUM (VITAMIN NOS, MINERALS NOS) [Concomitant]
  15. ASCORBIC ACID [Concomitant]
  16. CALTRATE (CALCIUM CARBONATE) [Concomitant]
  17. PERIOMED (ALL OTHER THERAPEUTIC PRODUCTS) [Concomitant]
  18. NEURONTIN [Concomitant]
  19. GLYBURIDE [Concomitant]
  20. KETOCONAZOLE [Concomitant]
  21. POLYSPORIN (POLYMYXIN B SULFATE, GRAMICIDIN) [Concomitant]
  22. VYTORIN (SIMVASTATIN, EZETIMIBE) [Concomitant]
  23. POTASSIUM ER (POTASSIUM) [Concomitant]
  24. LASIX [Concomitant]

REACTIONS (7)
  - ARTHRITIS [None]
  - DYSPNOEA [None]
  - FLUID RETENTION [None]
  - OEDEMA [None]
  - OSTEOARTHRITIS [None]
  - WEIGHT DECREASED [None]
  - WEIGHT INCREASED [None]
